FAERS Safety Report 20146884 (Version 1)
Quarter: 2021Q4

REPORT INFORMATION
  Report Type: Spontaneous
  Country: PT (occurrence: GB)
  Receive Date: 20211203
  Receipt Date: 20211203
  Transmission Date: 20220303
  Serious: Yes (Other)
  Sender: FDA-Public Use
  Company Number: GB-BIAL-BIAL-09639

PATIENT

DRUGS (1)
  1. ESLICARBAZEPINE ACETATE [Suspect]
     Active Substance: ESLICARBAZEPINE ACETATE
     Dosage: UNKNOWN
     Route: 065

REACTIONS (1)
  - Suicidal ideation [Unknown]
